FAERS Safety Report 20658095 (Version 1)
Quarter: 2022Q1

REPORT INFORMATION
  Report Type: Spontaneous
  Country: US (occurrence: None)
  Receive Date: 20220330
  Receipt Date: 20220330
  Transmission Date: 20220423
  Serious: Yes (Other)
  Sender: FDA-Public Use
  Company Number: None

PATIENT
  Sex: Female

DRUGS (1)
  1. PACLITAXEL [Suspect]
     Active Substance: PACLITAXEL
     Indication: Breast cancer
     Route: 042

REACTIONS (8)
  - Chills [None]
  - Pallor [None]
  - Muscle spasticity [None]
  - Infusion site pain [None]
  - Infusion site swelling [None]
  - Infusion site erythema [None]
  - Infusion site pain [None]
  - Heart rate increased [None]

NARRATIVE: CASE EVENT DATE: 20220309
